FAERS Safety Report 5714312-2 (Version None)
Quarter: 2008Q2

REPORT INFORMATION
  Report Type: 
  Country: None (occurrence: None)
  Receive Date: 20080422
  Receipt Date: 20080422
  Transmission Date: 20081010
  Serious: Yes (Hospitalization)
  Sender: FDA-Public Use
  Company Number: None

PATIENT
  Age: 73 Year
  Sex: Male
  Weight: 68.49 kg

DRUGS (2)
  1. GLIPIZIDE [Suspect]
     Indication: DIABETES MELLITUS
     Dosage: 2.5 MG BID PO
     Route: 048
  2. TRIMETHOPRIM-SULFAMETHOXAZOLE [Suspect]
     Indication: UROSEPSIS
     Dosage: 800/160 MG BID PO
     Route: 048
     Dates: start: 20080109, end: 20080113

REACTIONS (1)
  - HYPOGLYCAEMIA [None]
